FAERS Safety Report 8282253-5 (Version None)
Quarter: 2012Q2

REPORT INFORMATION
  Report Type: 
  Country: None (occurrence: None)
  Receive Date: 20120413
  Receipt Date: 20120410
  Transmission Date: 20120825
  Serious: Yes (Life-Threatening)
  Sender: FDA-Public Use
  Company Number: US-JNJFOC-20120404646

PATIENT
  Age: 62 Year
  Sex: Female

DRUGS (3)
  1. NUCYNTA ER [Suspect]
     Indication: PRODUCT USED FOR UNKNOWN INDICATION
     Dosage: 50 MG
     Route: 065
     Dates: start: 20111222
  2. UNKNOWN MEDICATION [Suspect]
     Indication: PRODUCT USED FOR UNKNOWN INDICATION
     Route: 065
  3. BETA BLOCKER AGENT [Suspect]
     Indication: PRODUCT USED FOR UNKNOWN INDICATION
     Route: 065

REACTIONS (9)
  - BLOOD PRESSURE IMMEASURABLE [None]
  - AGITATION [None]
  - BLOOD CREATININE INCREASED [None]
  - SYNCOPE [None]
  - UNRESPONSIVE TO STIMULI [None]
  - BRADYCARDIA [None]
  - PNEUMONIA ASPIRATION [None]
  - BLOOD ALBUMIN DECREASED [None]
  - MULTIPLE DRUG OVERDOSE [None]
